APPROVED DRUG PRODUCT: DIOVAN
Active Ingredient: VALSARTAN
Strength: 160MG
Dosage Form/Route: CAPSULE;ORAL
Application: N020665 | Product #002
Applicant: NOVARTIS PHARMACEUTICALS CORP
Approved: Dec 23, 1996 | RLD: No | RS: No | Type: DISCN